FAERS Safety Report 24254106 (Version 5)
Quarter: 2024Q4

REPORT INFORMATION
  Report Type: Report from Study
  Country: US (occurrence: US)
  Receive Date: 20240827
  Receipt Date: 20241113
  Transmission Date: 20250114
  Serious: Yes (Hospitalization, Other)
  Sender: PFIZER
  Company Number: US-PFIZER INC-PV202400110130

PATIENT
  Age: 42 Year
  Sex: Female

DRUGS (3)
  1. IBRANCE [Suspect]
     Active Substance: PALBOCICLIB
     Indication: Breast cancer female
     Dosage: 100 MG, CYCLIC (TABLET BY MOUTH DAILY FOR 21 DAYS ON/7 DAYS OFF)
     Route: 048
     Dates: start: 20240525
  2. IBRANCE [Suspect]
     Active Substance: PALBOCICLIB
     Dosage: 100 MG, CYCLIC (100 MG TABLET BY MOUTH DAILY FOR 21 DAYS ON/7 DAYS OFF)
     Route: 048
     Dates: start: 20240525
  3. FASLODEX [Concomitant]
     Active Substance: FULVESTRANT
     Dosage: UNK

REACTIONS (8)
  - Pancreatitis chronic [Recovered/Resolved]
  - Condition aggravated [Recovered/Resolved]
  - Respiration abnormal [Unknown]
  - Croup infectious [Unknown]
  - Full blood count decreased [Not Recovered/Not Resolved]
  - Vomiting [Not Recovered/Not Resolved]
  - Cough [Not Recovered/Not Resolved]
  - Dyspnoea [Recovering/Resolving]

NARRATIVE: CASE EVENT DATE: 20240101
